FAERS Safety Report 7933457-X (Version None)
Quarter: 2011Q4

REPORT INFORMATION
  Report Type: 
  Country: None (occurrence: None)
  Receive Date: 20111122
  Receipt Date: 20110823
  Transmission Date: 20120403
  Serious: No
  Sender: FDA-Public Use
  Company Number: US-BAYER-2011-079969

PATIENT

DRUGS (3)
  1. ALEVE (CAPLET) [Suspect]
     Indication: APHTHOUS STOMATITIS
  2. ORAJEL [Concomitant]
  3. SALT WALTER [Concomitant]
     Indication: APHTHOUS STOMATITIS

REACTIONS (1)
  - APHTHOUS STOMATITIS [None]
